FAERS Safety Report 5882979-4 (Version None)
Quarter: 2008Q3

REPORT INFORMATION
  Report Type: 
  Country: None (occurrence: None)
  Receive Date: 20080913
  Receipt Date: 20080825
  Transmission Date: 20090109
  Serious: No
  Sender: FDA-Public Use
  Company Number: US-ABBOTT-08P-163-0472470-00

PATIENT
  Sex: Female
  Weight: 81.72 kg

DRUGS (2)
  1. HUMIRA [Suspect]
     Indication: COLITIS ULCERATIVE
     Route: 050
     Dates: start: 20080824
  2. HUMIRA [Suspect]
     Dosage: PRE FILLED SYRINGE
     Dates: start: 20080629, end: 20080824

REACTIONS (1)
  - ACCIDENTAL EXPOSURE [None]
